FAERS Safety Report 7225734-5 (Version None)
Quarter: 2011Q1

REPORT INFORMATION
  Report Type: 
  Country: None (occurrence: None)
  Receive Date: 20110110
  Receipt Date: 20110110
  Transmission Date: 20110831
  Serious: Yes (Other)
  Sender: FDA-Public Use
  Company Number: None

PATIENT
  Age: 84 Year
  Sex: Female
  Weight: 50.8029 kg

DRUGS (1)
  1. ENALAPRIL MALEATE [Suspect]
     Indication: HYPERTENSION
     Dosage: 2.5 MG BID PO
     Route: 048
     Dates: start: 20101202, end: 20101230

REACTIONS (3)
  - DRUG EFFECT DECREASED [None]
  - BLOOD PRESSURE INADEQUATELY CONTROLLED [None]
  - PRODUCT QUALITY ISSUE [None]
